FAERS Safety Report 8649804 (Version 2)
Quarter: 2012Q4

REPORT INFORMATION
  Report Type: 
  Country: JP (occurrence: JP)
  Receive Date: 20120705
  Receipt Date: 20121012
  Transmission Date: 20130627
  Serious: Yes (Death, Other)
  Sender: FDA-Public Use
  Company Number: PHHY2012JP056660

PATIENT
  Age: 26 Year
  Sex: Male

DRUGS (6)
  1. GLIVEC [Suspect]
     Indication: ACUTE LYMPHOCYTIC LEUKAEMIA
     Dosage: 600 mg, daily
     Route: 048
     Dates: start: 200908, end: 200911
  2. GLIVEC [Suspect]
     Dosage: 600 mg, daily
     Route: 048
     Dates: start: 201001
  3. ETOPOSIDE [Concomitant]
     Dosage: 30 mg, UNK
  4. CYCLOPHOSPHAMIDE [Concomitant]
     Dosage: 120 mg
  5. RADIOTHERAPY [Concomitant]
     Dosage: 12 GY
     Dates: start: 20091208
  6. NEORAL [Concomitant]
     Route: 048

REACTIONS (5)
  - Multi-organ failure [Fatal]
  - Neoplasm progression [Fatal]
  - Malignant neoplasm progression [Fatal]
  - Leukaemia recurrent [Fatal]
  - Drug resistance [Unknown]
